FAERS Safety Report 24744742 (Version 1)
Quarter: 2024Q4

REPORT INFORMATION
  Report Type: Spontaneous
  Country: RU (occurrence: RU)
  Receive Date: 20241217
  Receipt Date: 20241217
  Transmission Date: 20250114
  Serious: Yes (Other)
  Sender: BAYER HEALTHCARE PHARMACEUTICALS INC.
  Company Number: RU-BAYER-2024A177831

PATIENT
  Sex: Female

DRUGS (1)
  1. ULTRAVIST [Suspect]
     Active Substance: IOPROMIDE
     Indication: Computerised tomogram
     Dosage: UNK UNK, ONCE
     Route: 042
     Dates: start: 20241206, end: 20241206

REACTIONS (6)
  - Asphyxia [None]
  - Face oedema [None]
  - Malaise [None]
  - Rash [None]
  - Nasal congestion [None]
  - Suspected product quality issue [None]

NARRATIVE: CASE EVENT DATE: 20241206
